FAERS Safety Report 9671867 (Version 1)
Quarter: 2013Q4

REPORT INFORMATION
  Report Type: Spontaneous
  Country: FR (occurrence: FR)
  Receive Date: 20131106
  Receipt Date: 20131106
  Transmission Date: 20140711
  Serious: Yes (Death, Life-Threatening)
  Sender: FDA-Public Use
  Company Number: FR-JNJFOC-20131102342

PATIENT
  Age: 53 Year
  Sex: Female

DRUGS (1)
  1. XARELTO [Suspect]
     Indication: PRODUCT USED FOR UNKNOWN INDICATION
     Route: 048
     Dates: start: 20121012, end: 20130817

REACTIONS (5)
  - Ischaemic stroke [Fatal]
  - Speech disorder [Fatal]
  - Headache [Fatal]
  - Chest discomfort [Fatal]
  - Dyspnoea [Fatal]
